FAERS Safety Report 7286236-3 (Version None)
Quarter: 2011Q1

REPORT INFORMATION
  Report Type: 
  Country: None (occurrence: None)
  Receive Date: 20110210
  Receipt Date: 20110202
  Transmission Date: 20110831
  Serious: Yes (Other)
  Sender: FDA-Public Use
  Company Number: PHHY2010NO84238

PATIENT
  Sex: Female

DRUGS (2)
  1. ZOMETA [Suspect]
     Indication: METASTASES TO BONE
     Dosage: EVERY 3-4 WEEK
     Dates: start: 20091201, end: 20100701
  2. ZOMETA [Suspect]
     Dosage: EVERY 6 WEEKS
     Dates: start: 20100701, end: 20101130

REACTIONS (2)
  - MOBILITY DECREASED [None]
  - FACIAL PARESIS [None]
